FAERS Safety Report 13563422 (Version 1)
Quarter: 2017Q2

REPORT INFORMATION
  Report Type: Spontaneous
  Country: US (occurrence: US)
  Receive Date: 20170519
  Receipt Date: 20170519
  Transmission Date: 20170830
  Serious: No
  Sender: FDA-Public Use
  Company Number: US-PFIZER INC-2017220197

PATIENT
  Age: 56 Year
  Sex: Male

DRUGS (1)
  1. GABAPENTIN. [Suspect]
     Active Substance: GABAPENTIN
     Indication: NEUROPATHY PERIPHERAL

REACTIONS (5)
  - Thinking abnormal [Unknown]
  - Arthralgia [Unknown]
  - Malaise [Unknown]
  - Drug ineffective for unapproved indication [Unknown]
  - Memory impairment [Unknown]
